FAERS Safety Report 4475141-3 (Version None)
Quarter: 2004Q3

REPORT INFORMATION
  Report Type: 
  Country: None (occurrence: None)
  Receive Date: 20040923
  Receipt Date: 20040623
  Transmission Date: 20050211
  Serious: No
  Sender: FDA-Public Use
  Company Number: USA040670947

PATIENT
  Age: 66 Year
  Sex: Female

DRUGS (6)
  1. FORTEO [Suspect]
     Indication: OSTEOPOROSIS
     Dates: start: 20040527
  2. PREDNISONE [Concomitant]
  3. AZATHIOPRINE [Concomitant]
  4. THYROID TAB [Concomitant]
  5. FOLIC ACID [Concomitant]
  6. CELEXA [Concomitant]

REACTIONS (4)
  - CRYING [None]
  - DEPRESSION [None]
  - FATIGUE [None]
  - TREMOR [None]
